FAERS Safety Report 12179535 (Version 1)
Quarter: 2016Q1

REPORT INFORMATION
  Report Type: Not Available
  Country: None (occurrence: US)
  Receive Date: 20160314
  Receipt Date: 20160314
  Transmission Date: 20160526
  Serious: Yes (Hospitalization)
  Sender: FDA-Public Use
  Company Number: US-AKORN-21125

PATIENT
  Age: 76 Year
  Sex: Female
  Weight: 53 kg

DRUGS (1)
  1. LEVALBUTEROL HCL 1.25MG/3ML [Suspect]
     Active Substance: LEVALBUTEROL HYDROCHLORIDE

REACTIONS (7)
  - Nervousness [None]
  - Blood pressure increased [None]
  - Anxiety [None]
  - Chills [None]
  - Feeling jittery [None]
  - Disturbance in attention [None]
  - Tremor [None]

NARRATIVE: CASE EVENT DATE: 20150701
